FAERS Safety Report 14031911 (Version 3)
Quarter: 2018Q2

REPORT INFORMATION
  Report Type: Spontaneous
  Country: JP (occurrence: JP)
  Receive Date: 20171002
  Receipt Date: 20180607
  Transmission Date: 20180711
  Serious: Yes (Death, Life-Threatening, Other)
  Sender: FDA-Public Use
  Company Number: JP-ACTELION-A-CH2017-158983

PATIENT
  Age: 65 Year
  Sex: Male

DRUGS (9)
  1. OPSUMIT [Suspect]
     Active Substance: MACITENTAN
     Indication: PULMONARY ARTERIAL HYPERTENSION
     Dosage: 10 MG, UNK
     Route: 048
     Dates: start: 20151206, end: 20170918
  2. EPOPROSTENOL ACT [Suspect]
     Active Substance: EPOPROSTENOL
     Indication: PULMONARY ARTERIAL HYPERTENSION
     Dosage: 17.9 NG/KG, PER MIN
     Route: 042
     Dates: end: 20170918
  3. BERAPROST NA [Concomitant]
     Active Substance: BERAPROST SODIUM
  4. EPOPROSTENOL ACT [Suspect]
     Active Substance: EPOPROSTENOL
     Dosage: 7 NG/KG, PER MIN
     Route: 042
     Dates: start: 20170807
  5. OXYGEN. [Concomitant]
     Active Substance: OXYGEN
  6. TADALAFIL [Concomitant]
     Active Substance: TADALAFIL
  7. RIOCIGUAT. [Concomitant]
     Active Substance: RIOCIGUAT
  8. UPTRAVI [Concomitant]
     Active Substance: SELEXIPAG
     Route: 048
  9. EPOPROSTENOL ACT [Suspect]
     Active Substance: EPOPROSTENOL
     Dosage: UNK
     Route: 042
     Dates: start: 20170620

REACTIONS (6)
  - Pulmonary hypertension [Fatal]
  - Platelet count decreased [Not Recovered/Not Resolved]
  - Packed red blood cell transfusion [Unknown]
  - Anaemia [Not Recovered/Not Resolved]
  - Sepsis [Not Recovered/Not Resolved]
  - Pulmonary alveolar haemorrhage [Not Recovered/Not Resolved]

NARRATIVE: CASE EVENT DATE: 20170812
